FAERS Safety Report 14974590 (Version 1)
Quarter: 2018Q2

REPORT INFORMATION
  Report Type: Report from Study
  Country: PH (occurrence: PH)
  Receive Date: 20180605
  Receipt Date: 20180605
  Transmission Date: 20180711
  Serious: Yes (Life-Threatening, Hospitalization)
  Sender: FDA-Public Use
  Company Number: PH-OTSUKA-2018_013493

PATIENT
  Age: 26 Year
  Sex: Male

DRUGS (10)
  1. ARIPIPRAZOLE. [Suspect]
     Active Substance: ARIPIPRAZOLE
     Indication: ANGER
  2. ARIPIPRAZOLE. [Suspect]
     Active Substance: ARIPIPRAZOLE
     Indication: DEPRESSION
     Dosage: UNK UNK, QD
     Route: 065
     Dates: start: 20180301, end: 20180507
  3. RISPERIDONE. [Suspect]
     Active Substance: RISPERIDONE
     Indication: ANGER
  4. MULTIPLE VITAMINS [Suspect]
     Active Substance: VITAMINS
     Indication: PRODUCT USED FOR UNKNOWN INDICATION
     Dosage: UNK
     Route: 065
  5. ARIPIPRAZOLE. [Suspect]
     Active Substance: ARIPIPRAZOLE
     Indication: EMOTIONAL DISORDER
  6. RISPERIDONE. [Suspect]
     Active Substance: RISPERIDONE
     Indication: DEPRESSION
     Dosage: UNK
     Route: 065
     Dates: start: 20180508
  7. RISPERIDONE. [Suspect]
     Active Substance: RISPERIDONE
     Indication: EMOTIONAL DISORDER
  8. VALPROIC ACID. [Suspect]
     Active Substance: VALPROIC ACID
     Indication: EMOTIONAL DISORDER
     Dosage: 500 MG, QD
     Route: 065
     Dates: start: 20180301
  9. ESCITALOPRAM [Suspect]
     Active Substance: ESCITALOPRAM OXALATE
     Indication: DEPRESSION
     Dosage: 10 MG, QD
     Route: 065
     Dates: start: 20180301
  10. CLONAZEPAM. [Concomitant]
     Active Substance: CLONAZEPAM
     Indication: PRODUCT USED FOR UNKNOWN INDICATION
     Dosage: 10 MG, UNK (AS NEEDED)
     Route: 065

REACTIONS (3)
  - Product use in unapproved indication [Unknown]
  - Drug ineffective [Unknown]
  - Multiple drug therapy [Unknown]

NARRATIVE: CASE EVENT DATE: 20180305
